FAERS Safety Report 9973599 (Version 1)
Quarter: 2014Q1

REPORT INFORMATION
  Report Type: Spontaneous
  Country: IT (occurrence: IT)
  Receive Date: 20140306
  Receipt Date: 20140306
  Transmission Date: 20141002
  Serious: Yes (Hospitalization)
  Sender: FDA-Public Use
  Company Number: IT-SA-2014SA023659

PATIENT
  Age: 74 Year
  Sex: Female

DRUGS (7)
  1. PLAVIX [Suspect]
     Indication: PRODUCT USED FOR UNKNOWN INDICATION
     Route: 048
     Dates: start: 20120101, end: 20130626
  2. COUMADIN [Suspect]
     Indication: ATRIAL FIBRILLATION
     Dosage: DOSE:1 UNIT(S)
     Route: 048
     Dates: start: 20130101, end: 20130626
  3. CARDICOR [Concomitant]
  4. LASIX [Concomitant]
     Dosage: STRENGTH: 500 MG
  5. LASIX [Concomitant]
     Dosage: STRENGHT: 25 MG
  6. VALSARTAN [Concomitant]
     Dosage: STRENGTH: 40 MG FILM COATED TABLET
  7. TORVAST [Concomitant]
     Dosage: STRENGTH: 10 MG

REACTIONS (6)
  - Metabolic acidosis [Unknown]
  - Syncope [Unknown]
  - Hyperlactacidaemia [Unknown]
  - Anaemia [Unknown]
  - Gastric haemorrhage [Unknown]
  - Subdural haematoma [Unknown]
